FAERS Safety Report 6298686-2 (Version None)
Quarter: 2009Q3

REPORT INFORMATION
  Report Type: 
  Country: None (occurrence: None)
  Receive Date: 20090804
  Receipt Date: 20090720
  Transmission Date: 20100115
  Serious: Yes (Other)
  Sender: FDA-Public Use
  Company Number: 430017M08USA

PATIENT
  Age: 60 Year
  Sex: Female
  Weight: 127 kg

DRUGS (1)
  1. NOVANTRONE [Suspect]
     Indication: MULTIPLE SCLEROSIS
     Dosage: INTRAVENOUS (NOT OTHERWISE SPECIFIED)
     Route: 042
     Dates: start: 20060801, end: 20081201

REACTIONS (4)
  - CELLULITIS [None]
  - DEEP VEIN THROMBOSIS [None]
  - OEDEMA PERIPHERAL [None]
  - URINARY TRACT INFECTION [None]
